FAERS Safety Report 25944387 (Version 3)
Quarter: 2025Q4

REPORT INFORMATION
  Report Type: Spontaneous
  Country: US (occurrence: US)
  Receive Date: 20251021
  Receipt Date: 20251219
  Transmission Date: 20260118
  Serious: No
  Sender: CIPLA
  Company Number: US-CIPLA LTD.-2025US12784

PATIENT

DRUGS (4)
  1. ALBUTEROL [Suspect]
     Active Substance: ALBUTEROL
     Indication: Asthma
     Dosage: UNK (FEW YEARS AGO) (THREE TO FOUR TIMES A DAY )
  2. ALBUTEROL [Suspect]
     Active Substance: ALBUTEROL
     Dosage: UNK (FIRST INHALER) (THREE TO FOUR TIMES A DAY)
     Dates: start: 202509, end: 2025
  3. ALBUTEROL [Suspect]
     Active Substance: ALBUTEROL
     Dosage: UNK (SECOND AND THIRD INHALERS) (THREE TO FOUR TIMES A DAY)
     Dates: start: 202509, end: 2025
  4. SINGULAIR [Concomitant]
     Active Substance: MONTELUKAST SODIUM
     Indication: Product used for unknown indication
     Dosage: UNK
     Route: 065

REACTIONS (5)
  - Expired product administered [Unknown]
  - Drug dose omission by device [Unknown]
  - Device delivery system issue [Unknown]
  - Device mechanical issue [Unknown]
  - Device occlusion [Unknown]

NARRATIVE: CASE EVENT DATE: 20250901
